FAERS Safety Report 19633775 (Version 1)
Quarter: 2021Q3

REPORT INFORMATION
  Report Type: Spontaneous
  Country: CA (occurrence: CA)
  Receive Date: 20210730
  Receipt Date: 20210730
  Transmission Date: 20211014
  Serious: Yes (Other)
  Sender: FDA-Public Use
  Company Number: CA-TERSERA THERAPEUTICS LLC-2021TRS003568

PATIENT

DRUGS (1)
  1. ZOLADEX [Suspect]
     Active Substance: GOSERELIN ACETATE
     Indication: PROSTATE CANCER
     Dosage: 10.8 MG, Q12 WEEKS
     Route: 058
     Dates: start: 20210615

REACTIONS (5)
  - Hot flush [Not Recovered/Not Resolved]
  - Rash [Recovering/Resolving]
  - Constipation [Unknown]
  - Insomnia [Unknown]
  - Haematochezia [Unknown]

NARRATIVE: CASE EVENT DATE: 20210717
